FAERS Safety Report 6221875-X (Version None)
Quarter: 2009Q2

REPORT INFORMATION
  Report Type: 
  Country: None (occurrence: None)
  Receive Date: 20090609
  Receipt Date: 20090609
  Transmission Date: 20091009
  Serious: No
  Sender: FDA-Public Use
  Company Number: None

PATIENT
  Age: 13 Year
  Sex: Male
  Weight: 70.7611 kg

DRUGS (3)
  1. RISPERIDONE - GENERIC SA [Suspect]
     Indication: BIPOLAR DISORDER
     Dosage: 1MG PO BID
     Route: 048
     Dates: start: 20090501, end: 20090601
  2. RISPERDAL [Suspect]
     Indication: ASPERGER'S DISORDER
  3. DEPAKOTE ER [Concomitant]

REACTIONS (5)
  - ABNORMAL BEHAVIOUR [None]
  - DISTURBANCE IN ATTENTION [None]
  - MOOD SWINGS [None]
  - PRODUCT SUBSTITUTION ISSUE [None]
  - VERBAL ABUSE [None]
